FAERS Safety Report 4375925-6 (Version None)
Quarter: 2004Q2

REPORT INFORMATION
  Report Type: 
  Country: None (occurrence: None)
  Receive Date: 20040607
  Receipt Date: 20040527
  Transmission Date: 20050107
  Serious: Yes (Hospitalization)
  Sender: FDA-Public Use
  Company Number: FRWYE777724MAY04

PATIENT
  Age: 23 Year
  Sex: Male

DRUGS (3)
  1. RAPAMUNE [Suspect]
     Indication: PROPHYLAXIS AGAINST TRANSPLANT REJECTION
     Dosage: 6 MG 1X PER DAY
     Route: 048
     Dates: start: 20030806
  2. CELLCEPT [Suspect]
     Indication: PROPHYLAXIS AGAINST TRANSPLANT REJECTION
     Dosage: 500 MG 1X PER 1 DAY
     Route: 048
     Dates: start: 20030805
  3. PREDNISONE TAB [Concomitant]

REACTIONS (1)
  - RENAL FAILURE [None]
